FAERS Safety Report 16928911 (Version 1)
Quarter: 2019Q4

REPORT INFORMATION
  Report Type: Spontaneous
  Country: US (occurrence: US)
  Receive Date: 20191017
  Receipt Date: 20191017
  Transmission Date: 20200122
  Serious: No
  Sender: FDA-Public Use
  Company Number: US-ALVOGEN-2019-ALVOGEN-101468

PATIENT
  Age: 35 Year
  Sex: Male

DRUGS (6)
  1. JYNARQUE [Suspect]
     Active Substance: TOLVAPTAN
     Indication: CONGENITAL CYSTIC KIDNEY DISEASE
     Dosage: 60 MG, DAILY
     Dates: start: 20181015
  2. COREG [Suspect]
     Active Substance: CARVEDILOL
     Indication: HYPERTENSION
     Dosage: 25 MG, BID
     Route: 048
  3. CARVEDILOL. [Concomitant]
     Active Substance: CARVEDILOL
     Indication: PRODUCT USED FOR UNKNOWN INDICATION
  4. LISINOPRIL. [Suspect]
     Active Substance: LISINOPRIL
     Indication: HYPERTENSION
  5. AMLODIPINE BESILATE [Concomitant]
     Active Substance: AMLODIPINE BESYLATE
     Indication: PRODUCT USED FOR UNKNOWN INDICATION
  6. JYNARQUE [Suspect]
     Active Substance: TOLVAPTAN
     Indication: CONGENITAL CYSTIC KIDNEY DISEASE
     Dosage: 30 MG, DAILY
     Dates: start: 20181015

REACTIONS (14)
  - Cough [Unknown]
  - High density lipoprotein decreased [Unknown]
  - Musculoskeletal chest pain [Unknown]
  - Back pain [Unknown]
  - Weight decreased [Unknown]
  - Stress fracture [Unknown]
  - Pain in extremity [Unknown]
  - Dyspnoea [Unknown]
  - Polyuria [Unknown]
  - Peripheral swelling [Unknown]
  - Blood triglycerides increased [Unknown]
  - Dry mouth [Unknown]
  - Thirst [Unknown]
  - Hypotension [Unknown]
